FAERS Safety Report 20976400 (Version 2)
Quarter: 2022Q3

REPORT INFORMATION
  Report Type: Spontaneous
  Country: CO (occurrence: CO)
  Receive Date: 20220617
  Receipt Date: 20220705
  Transmission Date: 20221027
  Serious: Yes (Other)
  Sender: FDA-Public Use
  Company Number: CO-AMGEN-COLSP2022101219

PATIENT
  Age: 68 Year
  Sex: Female
  Weight: 60 kg

DRUGS (10)
  1. MVASI [Suspect]
     Active Substance: BEVACIZUMAB-AWWB
     Indication: Adenocarcinoma of colon
     Dosage: UNK
     Route: 042
  2. MVASI [Suspect]
     Active Substance: BEVACIZUMAB-AWWB
     Dosage: 290 MILLIGRAM, QD
     Route: 042
     Dates: start: 20220428
  3. NEULASTA [Suspect]
     Active Substance: PEGFILGRASTIM
     Indication: Adenocarcinoma of colon
     Dosage: UNK
     Route: 058
  4. NEULASTA [Suspect]
     Active Substance: PEGFILGRASTIM
     Dosage: 6 MILLIGRAM/0.6 ML, QD
     Route: 058
     Dates: start: 20220428
  5. LEUCOVORIN CALCIUM [Concomitant]
     Active Substance: LEUCOVORIN CALCIUM
     Indication: Adenocarcinoma of colon
     Dosage: UNK
     Dates: start: 20220428
  6. DEXAMETHASONE PHOSPHATE [Concomitant]
     Active Substance: DEXAMETHASONE PHOSPHATE
     Indication: Adenocarcinoma of colon
     Dosage: 8 MILLIGRAM, QD
     Route: 042
     Dates: start: 20220428
  7. FLUOROURACIL [Concomitant]
     Active Substance: FLUOROURACIL
     Indication: Adenocarcinoma of colon
     Dosage: UNK
  8. FOSAPREPITANT [Concomitant]
     Active Substance: FOSAPREPITANT
     Indication: Adenocarcinoma of colon
     Dosage: UNK
     Dates: start: 20220428
  9. ONDANSETRON [Concomitant]
     Active Substance: ONDANSETRON
     Indication: Adenocarcinoma of colon
     Dosage: 16 MILLIGRAM, QD
     Route: 042
     Dates: start: 20220428
  10. FLUOROURACIL\LEUCOVORIN CALCIUM\OXALIPLATIN [Concomitant]
     Active Substance: FLUOROURACIL\LEUCOVORIN CALCIUM\OXALIPLATIN

REACTIONS (1)
  - Neuropathy peripheral [Not Recovered/Not Resolved]

NARRATIVE: CASE EVENT DATE: 20220513
